FAERS Safety Report 24680015 (Version 2)
Quarter: 2025Q3

REPORT INFORMATION
  Report Type: Spontaneous
  Country: ZA (occurrence: ZA)
  Receive Date: 20241129
  Receipt Date: 20250803
  Transmission Date: 20251020
  Serious: Yes (Other)
  Sender: ALEXION PHARMACEUTICALS
  Company Number: ZA-AstraZeneca-CH-00754612A

PATIENT
  Age: 76 Year
  Sex: Female

DRUGS (10)
  1. DAPAGLIFLOZIN [Suspect]
     Active Substance: DAPAGLIFLOZIN
     Indication: Diabetes mellitus
  2. PREDNISONE [Suspect]
     Active Substance: PREDNISONE
  3. METHYLPREDNISOLONE ACEPONATE [Suspect]
     Active Substance: METHYLPREDNISOLONE ACEPONATE
  4. ESCITALOPRAM [Suspect]
     Active Substance: ESCITALOPRAM OXALATE
     Indication: Depression
  5. AMLODIPINE MALEATE [Suspect]
     Active Substance: AMLODIPINE MALEATE
     Indication: Hypertension
  6. PANTOPRAZOLE SODIUM [Suspect]
     Active Substance: PANTOPRAZOLE SODIUM
     Indication: Ulcer
  7. SIMVASTATIN [Suspect]
     Active Substance: SIMVASTATIN
     Indication: Blood cholesterol
  8. CARVEDILOL [Suspect]
     Active Substance: CARVEDILOL
     Indication: Hypertension
  9. ASPEN [Suspect]
     Active Substance: POPULUS TREMULOIDES POLLEN
  10. MEMANTINE HYDROCHLORIDE [Suspect]
     Active Substance: MEMANTINE HYDROCHLORIDE
     Indication: Dementia Alzheimer^s type

REACTIONS (1)
  - Deafness [Unknown]
